FAERS Safety Report 9120466 (Version 2)
Quarter: 2013Q3

REPORT INFORMATION
  Report Type: Report from Study
  Country: DE (occurrence: DE)
  Receive Date: 20130226
  Receipt Date: 20130719
  Transmission Date: 20140515
  Serious: Yes (Hospitalization)
  Sender: FDA-Public Use
  Company Number: DE-ROCHE-1190799

PATIENT
  Age: 46 Year
  Sex: Female
  Weight: 104 kg

DRUGS (4)
  1. TRASTUZUMAB [Suspect]
     Indication: BREAST CANCER METASTATIC
     Dosage: LOADING DOSE, ADMINISTERED OVER 90 MINUTES
     Route: 042
     Dates: start: 20121126
  2. TRASTUZUMAB [Suspect]
     Dosage: MAINTENANCE DOSE, ADMINISTERED OVER 90 MINUTES, DATE OF LAST DOSE PRIOR TO SAE: 07/JAN/2013
     Route: 042
  3. CAPECITABINE [Suspect]
     Indication: BREAST CANCER METASTATIC
     Dosage: DATE OF LAST DOSE PRIOR TO SAE: 22/JAN/2013
     Route: 048
     Dates: start: 20121126
  4. L-THYROXIN [Concomitant]
     Route: 065
     Dates: start: 2007, end: 20130615

REACTIONS (1)
  - Pulmonary embolism [Recovered/Resolved with Sequelae]
